FAERS Safety Report 5004988-X (Version None)
Quarter: 2006Q1

REPORT INFORMATION
  Report Type: 
  Country: None (occurrence: None)
  Receive Date: 20060321
  Receipt Date: 20060103
  Transmission Date: 20060701
  Serious: No
  Sender: FDA-Public Use
  Company Number: YPA20050599

PATIENT
  Age: 77 Year
  Sex: Female

DRUGS (17)
  1. VESICARE [Suspect]
     Indication: BLADDER DISORDER
     Dosage: 5 MG, ORAL
     Route: 048
     Dates: start: 20050905
  2. BLOOD PRESSURE MEDICATION() [Suspect]
     Indication: BLOOD PRESSURE
  3. MYLANTA (ALUMINIUM HYDROCHLORIDE GEL, DRIED, SIMETICONE) [Concomitant]
  4. DIOVAN [Concomitant]
  5. ZOCOR [Concomitant]
  6. PREVACID [Concomitant]
  7. FOSAMAX [Concomitant]
  8. TRILEPTAL [Concomitant]
  9. ADVAIR DISKUS 100/50 [Concomitant]
  10. SINGULAIR [Concomitant]
  11. ASCORBIC ACID [Concomitant]
  12. CALCIUM (CALCIUM) [Concomitant]
  13. OMEGA 3 (FISH OIL) [Concomitant]
  14. COSAMIN DS (ASCORBIC ACID, GLUCOSAMINE HYDROCHLORIDE, CHONDROITIN SULF [Concomitant]
  15. MULTIVITAMINS (ERGOCALCIFEROL, ASCORBIC ACID, FOLIC ACID, THIAMINE HYD [Concomitant]
  16. STOOL SOFTENER (DOCUSATE SODIUM) [Concomitant]
  17. VITAMIN B-12 [Concomitant]

REACTIONS (2)
  - COUGH [None]
  - DYSPEPSIA [None]
